FAERS Safety Report 7812044-8 (Version None)
Quarter: 2011Q4

REPORT INFORMATION
  Report Type: 
  Country: None (occurrence: None)
  Receive Date: 20111013
  Receipt Date: 20100602
  Transmission Date: 20120403
  Serious: Yes (Other)
  Sender: FDA-Public Use
  Company Number: US-JNJFOC-20111001847

PATIENT
  Sex: Female

DRUGS (2)
  1. CONCENTRATED TYLENOL INFANT DROPS [Suspect]
     Route: 065
  2. CONCENTRATED TYLENOL INFANT DROPS [Suspect]
     Indication: PROPHYLAXIS
     Route: 065

REACTIONS (2)
  - PYREXIA [None]
  - PRODUCT QUALITY ISSUE [None]
